FAERS Safety Report 24140789 (Version 2)
Quarter: 2024Q3

REPORT INFORMATION
  Report Type: Spontaneous
  Country: US (occurrence: US)
  Receive Date: 20240726
  Receipt Date: 20240802
  Transmission Date: 20241016
  Serious: Yes (Life-Threatening, Hospitalization)
  Sender: MACLEODS
  Company Number: US-MACLEODS PHARMA-MAC2024048448

PATIENT

DRUGS (2)
  1. LIDOCAINE [Suspect]
     Active Substance: LIDOCAINE
     Indication: Pain management
     Dosage: 20 ML OF 10 MG/ML, WITHOUT EPINEPHRINE FOR INJECTION
     Route: 065
  2. LIDOCAINE [Suspect]
     Active Substance: LIDOCAINE
     Indication: Local anaesthesia
     Dosage: 6 ML OF 10 MG/ML, WITHOUT EPINEPHRINE FOR INJECTION
     Route: 065

REACTIONS (9)
  - Local anaesthetic systemic toxicity [Recovered/Resolved]
  - Neurotoxicity [Recovered/Resolved]
  - Toxicity to various agents [Recovered/Resolved]
  - Seizure [Recovered/Resolved]
  - Hypoaesthesia oral [Recovered/Resolved]
  - Dysarthria [Recovered/Resolved]
  - Electrocardiogram PR prolongation [Recovered/Resolved]
  - Mental status changes [Recovered/Resolved]
  - Confusional state [Recovered/Resolved]
